FAERS Safety Report 25059785 (Version 1)
Quarter: 2025Q1

REPORT INFORMATION
  Report Type: Spontaneous
  Country: US (occurrence: US)
  Receive Date: 20250310
  Receipt Date: 20250310
  Transmission Date: 20250408
  Serious: No
  Sender: VERTEX
  Company Number: US-VERTEX PHARMACEUTICALS-2025-003637

PATIENT
  Age: 39 Year
  Sex: Female

DRUGS (3)
  1. SYMDEKO [Suspect]
     Active Substance: IVACAFTOR\TEZACAFTOR
     Indication: Cystic fibrosis
     Dosage: 1 YELLOW TABLET (100/150 MG) IN THE MORNING AND 1 BLUE TABLET (150MG) IN THE EVENING
     Route: 048
     Dates: start: 20250110
  2. AZTREONAM LYSINE [Suspect]
     Active Substance: AZTREONAM LYSINE
     Indication: Cystic fibrosis lung
     Dosage: 75 MG, TID
     Dates: start: 20210201
  3. SPRAVATO [Suspect]
     Active Substance: ESKETAMINE
     Indication: Major depression
     Dosage: 84 MG, QW
     Route: 045

REACTIONS (2)
  - Affective disorder [Not Recovered/Not Resolved]
  - Depression [Not Recovered/Not Resolved]
